FAERS Safety Report 7611246-3 (Version None)
Quarter: 2011Q3

REPORT INFORMATION
  Report Type: 
  Country: None (occurrence: None)
  Receive Date: 20110715
  Receipt Date: 20110707
  Transmission Date: 20111222
  Serious: Yes (Other)
  Sender: FDA-Public Use
  Company Number: US-TYCO HEALTHCARE/MALLINCKRODT-T201101138

PATIENT
  Sex: Female

DRUGS (1)
  1. EXALGO [Suspect]
     Indication: BACK PAIN
     Dosage: UNK
     Dates: start: 20110505, end: 20110517

REACTIONS (10)
  - CANDIDIASIS [None]
  - HYPOTENSION [None]
  - SYNCOPE [None]
  - DYSARTHRIA [None]
  - ABDOMINAL DISCOMFORT [None]
  - DEHYDRATION [None]
  - CONFUSIONAL STATE [None]
  - OVERDOSE [None]
  - FEELING ABNORMAL [None]
  - ABDOMINAL DISTENSION [None]
